FAERS Safety Report 10430372 (Version 3)
Quarter: 2014Q4

REPORT INFORMATION
  Report Type: Spontaneous
  Country: FR (occurrence: None)
  Receive Date: 20140902
  Receipt Date: 20141103
  Transmission Date: 20150528
  Serious: No
  Sender: FDA-Public Use
  Company Number: AXC-2014-000533

PATIENT
  Age: 48 Year
  Sex: Female
  Weight: 63 kg

DRUGS (2)
  1. BISMUTH SALICYLATE+METRONIDAZOLE+TETRACYCLINE HCL [Suspect]
     Active Substance: BISMUTH SUBSALICYLATE\METRONIDAZOLE\TETRACYCLINE HYDROCHLORIDE
     Indication: HELICOBACTER INFECTION
     Dosage: MISSED 11 DOSES
     Dates: start: 20140719, end: 20140728
  2. OMEPRAZOLE. [Concomitant]
     Active Substance: OMEPRAZOLE

REACTIONS (7)
  - Cerebellar syndrome [None]
  - Ataxia [None]
  - Malaise [None]
  - Dizziness [None]
  - Drug dose omission [None]
  - Dysgeusia [None]
  - Vertigo [None]

NARRATIVE: CASE EVENT DATE: 201407
